FAERS Safety Report 5420916-7 (Version None)
Quarter: 2007Q3

REPORT INFORMATION
  Report Type: 
  Country: None (occurrence: None)
  Receive Date: 20070821
  Receipt Date: 20070810
  Transmission Date: 20080115
  Serious: Yes (Death)
  Sender: FDA-Public Use
  Company Number: JP-ROCHE-504854

PATIENT
  Age: 40 Year
  Sex: Female

DRUGS (2)
  1. TAMIFLU [Suspect]
     Route: 048
     Dates: start: 20060216, end: 20060217
  2. LOXONIN [Concomitant]
     Route: 048

REACTIONS (4)
  - BRAIN OEDEMA [None]
  - CONVULSION [None]
  - ENCEPHALOPATHY [None]
  - PULMONARY OEDEMA [None]
